FAERS Safety Report 7976316-9 (Version None)
Quarter: 2011Q4

REPORT INFORMATION
  Report Type: 
  Country: None (occurrence: None)
  Receive Date: 20111213
  Receipt Date: 20111017
  Transmission Date: 20120403
  Serious: No
  Sender: FDA-Public Use
  Company Number: US-AMGEN-USASP2011053560

PATIENT
  Age: 52 Year
  Sex: Male

DRUGS (2)
  1. ENBREL [Suspect]
     Indication: RHEUMATOID ARTHRITIS
     Dosage: 50 MG, 2 TIMES/WK
     Dates: start: 20110701, end: 20111001
  2. ENBREL [Suspect]
     Indication: PSORIASIS

REACTIONS (4)
  - WEIGHT DECREASED [None]
  - DECREASED APPETITE [None]
  - ARTHRALGIA [None]
  - ALOPECIA [None]
